FAERS Safety Report 11063933 (Version 1)
Quarter: 2015Q2

REPORT INFORMATION
  Report Type: Spontaneous
  Country: US (occurrence: US)
  Receive Date: 20150424
  Receipt Date: 20150424
  Transmission Date: 20150821
  Serious: No
  Sender: FDA-Public Use
  Company Number: US-BAYER-2015-170265

PATIENT
  Sex: Female

DRUGS (1)
  1. GIANVI [Suspect]
     Active Substance: DROSPIRENONE\ETHINYL ESTRADIOL
     Indication: CONTRACEPTION
     Dosage: 1 DF, QD

REACTIONS (4)
  - Fatigue [None]
  - Hormone level abnormal [None]
  - Feeling abnormal [None]
  - Mood swings [None]
